FAERS Safety Report 8939980 (Version 2)
Quarter: 2014Q2

REPORT INFORMATION
  Report Type: Spontaneous
  Country: US (occurrence: US)
  Receive Date: 20121203
  Receipt Date: 20140515
  Transmission Date: 20141212
  Serious: Yes (Hospitalization, Disabling)
  Sender: FDA-Public Use
  Company Number: US-BAYER-2012-125395

PATIENT
  Age: 49 Year
  Sex: Female

DRUGS (12)
  1. YASMIN [Suspect]
     Dosage: UNK
     Dates: start: 2010, end: 20111121
  2. ZARAH [Suspect]
     Dosage: UNK
     Dates: start: 2010, end: 20111121
  3. TYLENOL [Concomitant]
     Dosage: 325 MG, 2 PILLS
     Route: 048
  4. ADVIL [Concomitant]
     Dosage: 3 PILLS EVERY 4 TO 6 HOURS
     Route: 048
  5. AMOXICILLIN W/CLAVULANIC ACID [Concomitant]
     Dosage: 875 MG, 1 TABLET TWICE DAILY FOR 10 DAYS
     Route: 048
  6. FLUCONAZOLE [Concomitant]
     Dosage: 150 MG, UNK
     Route: 048
  7. CELEXA [Concomitant]
     Dosage: 20 MG, 1 TABLET EVERY DAY
     Route: 048
  8. PROMETRIUM [Concomitant]
     Dosage: 200 MG, 1 CAPSULE EVERY EVENING FOR 14 DAYS A MONTH
     Route: 048
  9. OXYCODONE [Concomitant]
  10. DIFLUCAN [Concomitant]
  11. IBUPROFEN [Concomitant]
  12. AUGMENTIN [Concomitant]

REACTIONS (6)
  - Pulmonary embolism [None]
  - Injury [None]
  - Pain [None]
  - Deformity [None]
  - Anxiety [None]
  - Anhedonia [None]
